FAERS Safety Report 25493894 (Version 3)
Quarter: 2025Q3

REPORT INFORMATION
  Report Type: Spontaneous
  Country: CO (occurrence: CO)
  Receive Date: 20250630
  Receipt Date: 20250813
  Transmission Date: 20251021
  Serious: No
  Sender: PFIZER
  Company Number: CO-PFIZER INC-202500126083

PATIENT
  Age: 14 Year
  Sex: Male

DRUGS (1)
  1. GENOTROPIN [Suspect]
     Active Substance: SOMATROPIN
     Dosage: 1.2 MG, DAILY

REACTIONS (1)
  - Device delivery system issue [Unknown]
